FAERS Safety Report 9271778 (Version 1)
Quarter: 2013Q2

REPORT INFORMATION
  Report Type: Spontaneous
  Country: IT (occurrence: IT)
  Receive Date: 20130506
  Receipt Date: 20130510
  Transmission Date: 20140414
  Serious: Yes (Hospitalization)
  Sender: FDA-Public Use
  Company Number: IT-TEVA-401078ISR

PATIENT
  Age: 74 Year
  Sex: Male

DRUGS (7)
  1. CLOPIDOGREL TEVA [Suspect]
     Indication: TRANSIENT ISCHAEMIC ATTACK
     Dosage: 75 MILLIGRAM DAILY;
     Route: 048
     Dates: start: 20130130, end: 20130410
  2. DOXAZOSINA [Concomitant]
     Dates: start: 2012
  3. LOSARTAN [Concomitant]
     Dates: start: 2011
  4. LANSOPRAZOLO [Concomitant]
  5. VERAPAMIL CLORIDRATO [Concomitant]
     Dates: start: 2012
  6. SINESTIC [Concomitant]
     Dosage: 320MCG BUDESONIDE+9MCG FORMOTEROL FUMARATE DEHYDRATE
     Dates: start: 2012
  7. AVODART [Concomitant]
     Route: 048
     Dates: start: 2006

REACTIONS (2)
  - Transient ischaemic attack [Recovering/Resolving]
  - Drug ineffective [Recovering/Resolving]
